FAERS Safety Report 22218810 (Version 1)
Quarter: 2023Q2

REPORT INFORMATION
  Report Type: Spontaneous
  Country: US (occurrence: None)
  Receive Date: 20230415
  Receipt Date: 20230415
  Transmission Date: 20230722
  Serious: Yes (Life-Threatening, Disabling, Other)
  Sender: FDA-Public Use
  Company Number: None

PATIENT
  Age: 59 Year
  Sex: Female
  Weight: 79.65 kg

DRUGS (7)
  1. TRULICITY [Suspect]
     Active Substance: DULAGLUTIDE
     Indication: Type 2 diabetes mellitus
     Dosage: FREQUENCY : WEEKLY;?OTHER ROUTE : ABDOMEN AND OR THIGH ROTATED WEEKLY;?
     Route: 050
     Dates: start: 20230201, end: 20230322
  2. VITAMIN D3 [Concomitant]
     Active Substance: CHOLECALCIFEROL
  3. Ginger Powder [Concomitant]
  4. Wheatgrass Powder [Concomitant]
  5. Chlorella Powder [Concomitant]
  6. Kale Powder [Concomitant]
  7. POMEGRANATE [Concomitant]
     Active Substance: POMEGRANATE

REACTIONS (10)
  - Abdominal pain upper [None]
  - Nausea [None]
  - Insomnia [None]
  - Gastrointestinal disorder [None]
  - Dyspepsia [None]
  - Bowel movement irregularity [None]
  - Gastric dilatation [None]
  - Asthenia [None]
  - Fatigue [None]
  - Therapy interrupted [None]

NARRATIVE: CASE EVENT DATE: 20230201
